FAERS Safety Report 21447759 (Version 1)
Quarter: 2022Q4

REPORT INFORMATION
  Report Type: Spontaneous
  Country: DE (occurrence: DE)
  Receive Date: 20221012
  Receipt Date: 20221012
  Transmission Date: 20230113
  Serious: Yes (Hospitalization)
  Sender: FDA-Public Use
  Company Number: DE-ADRED-07980-01

PATIENT
  Age: 91 Year
  Sex: Female
  Weight: 72 kg

DRUGS (9)
  1. CARVEDILOL [Suspect]
     Active Substance: CARVEDILOL
     Indication: Product used for unknown indication
     Dosage: 1 DOSAGE FORMS DAILY; 25 MG, 0.5-0-0.5
  2. ALPHAGAN P [Concomitant]
     Active Substance: BRIMONIDINE TARTRATE
     Indication: Product used for unknown indication
     Dosage: 1 GTT DAILY; 1-0-0-0, DROPS,  STRENGTH :  0,2% M/V (2MG/ML)
  3. APIXABAN [Concomitant]
     Active Substance: APIXABAN
     Indication: Product used for unknown indication
     Dosage: 5 MILLIGRAM DAILY; 2.5 MG, 1-0-1-0
  4. LUMIGAN [Concomitant]
     Active Substance: BIMATOPROST
     Indication: Product used for unknown indication
     Dosage: 1 GTT DAILY; 0-0-0-1, STRENGTH : 0.3MG/ML
  5. TROSPIUM [Concomitant]
     Active Substance: TROSPIUM
     Indication: Product used for unknown indication
     Dosage: .5 DOSAGE FORMS DAILY; 30 MG, 0-0-0-0.5
  6. CRATAEGUS LAEVIGATA FLOWERING TOP [Concomitant]
     Active Substance: CRATAEGUS LAEVIGATA FLOWERING TOP
     Indication: Product used for unknown indication
     Dosage: 450 MG, NK, STRENGTH :  450MG CARDIOVASCULAR TABLETS
  7. LERCANIDIPINE [Concomitant]
     Active Substance: LERCANIDIPINE
     Indication: Product used for unknown indication
     Dosage: .5 DOSAGE FORMS DAILY; 10 MG, 0-0.5-0-0
  8. COSOPT [Concomitant]
     Active Substance: DORZOLAMIDE HYDROCHLORIDE\TIMOLOL MALEATE
     Indication: Product used for unknown indication
     Dosage: 2 GTT DAILY;  STRENGTH : 20MG/ML+5MG/ML, 1-0-1-0, DROP
  9. RAMIPRIL [Concomitant]
     Active Substance: RAMIPRIL
     Indication: Product used for unknown indication
     Dosage: 1.05 DOSAGE FORMS DAILY; 5 MG, 0.5-0-1-0

REACTIONS (3)
  - Dyspnoea [Unknown]
  - Hypertensive emergency [Unknown]
  - Product prescribing error [Unknown]

NARRATIVE: CASE EVENT DATE: 20210616
